FAERS Safety Report 4514212-X (Version None)
Quarter: 2004Q4

REPORT INFORMATION
  Report Type: 
  Country: None (occurrence: None)
  Receive Date: 20041124
  Receipt Date: 20041105
  Transmission Date: 20050328
  Serious: Yes (Death)
  Sender: FDA-Public Use
  Company Number: DE_041114636

PATIENT
  Age: 59 Year
  Sex: Male

DRUGS (1)
  1. YENTREVE (DULOXETINE HYDROCHLORIDE) [Suspect]
     Indication: STRESS INCONTINENCE
     Dosage: 1 DSG FORM/2 DAY
     Dates: start: 20040920

REACTIONS (1)
  - NAUSEA [None]
